FAERS Safety Report 6045413-X (Version None)
Quarter: 2009Q1

REPORT INFORMATION
  Report Type: 
  Country: None (occurrence: None)
  Receive Date: 20090121
  Receipt Date: 20090112
  Transmission Date: 20090719
  Serious: Yes (Death, Hospitalization)
  Sender: FDA-Public Use
  Company Number: US-PFIZER INC-2007049246

PATIENT
  Sex: Female
  Weight: 43.2 kg

DRUGS (7)
  1. AXITINIB [Suspect]
     Indication: GASTRIC CANCER
     Route: 048
     Dates: start: 20070420, end: 20070616
  2. IRINOTECAN HCL [Suspect]
     Indication: GASTRIC CANCER
     Dosage: 280 MG, EVERY 2 WEEKS
     Dates: start: 20070418, end: 20070418
  3. FLUOROURACIL [Suspect]
     Indication: GASTRIC CANCER
     Dosage: 5 MG, 2X/DAY
     Dates: start: 20070420, end: 20070616
  4. FOLINIC ACID [Suspect]
     Indication: GASTRIC CANCER
     Dosage: 650 MG, EVERY 2 WEEKS
     Dates: start: 20070418, end: 20070606
  5. LORTAB [Concomitant]
     Dosage: Q4 PRN
     Route: 048
     Dates: start: 20070409
  6. KYTRIL [Concomitant]
     Route: 048
     Dates: start: 20070511
  7. OCEAN NASAL SPRAY [Concomitant]
     Route: 045
     Dates: start: 20070521

REACTIONS (6)
  - CARDIAC ENZYMES INCREASED [None]
  - DEATH [None]
  - HYPOKALAEMIA [None]
  - HYPOTENSION [None]
  - LEUKOPENIA [None]
  - METABOLIC ACIDOSIS [None]
